FAERS Safety Report 4369559-7 (Version None)
Quarter: 2004Q2

REPORT INFORMATION
  Report Type: 
  Country: None (occurrence: None)
  Receive Date: 20040603
  Receipt Date: 20040309
  Transmission Date: 20050107
  Serious: Yes (Hospitalization, Other)
  Sender: FDA-Public Use
  Company Number: PHBS2004BR03411

PATIENT
  Age: 50 Year
  Sex: Female
  Weight: 47 kg

DRUGS (4)
  1. ZELMAC [Suspect]
     Indication: IRRITABLE BOWEL SYNDROME
     Dosage: 6 MG/DAY
     Route: 048
     Dates: start: 20031101, end: 20040101
  2. PANTOPRAZOLE [Concomitant]
     Indication: GASTRITIS
     Dosage: 20 MG, UNK
     Route: 048
     Dates: start: 20031101
  3. OMEPRAZOLE [Concomitant]
     Indication: GASTRITIS
     Dosage: 20 MG, UNK
     Route: 048
  4. DIMETICONE [Concomitant]
     Indication: FLATULENCE

REACTIONS (12)
  - ASTHENIA [None]
  - COELIAC DISEASE [None]
  - DEHYDRATION [None]
  - DIZZINESS [None]
  - EATING DISORDER [None]
  - FLATULENCE [None]
  - INTESTINAL OBSTRUCTION [None]
  - MALAISE [None]
  - RETCHING [None]
  - SYNCOPE [None]
  - THIRST [None]
  - WEIGHT DECREASED [None]
